FAERS Safety Report 7730170-9 (Version None)
Quarter: 2011Q3

REPORT INFORMATION
  Report Type: 
  Country: None (occurrence: None)
  Receive Date: 20110906
  Receipt Date: 20110830
  Transmission Date: 20111222
  Serious: Yes (Death, Other)
  Sender: FDA-Public Use
  Company Number: PHHY2011MX77259

PATIENT
  Age: 55 Year
  Sex: Female

DRUGS (2)
  1. INSULIN [Concomitant]
     Dosage: UNK UKN, UNK
  2. EXFORGE [Suspect]
     Indication: HYPERTENSION
     Dosage: (VALS 160 MG, AMLO 05 MG) 1 DF, DAILY
     Dates: start: 20100301

REACTIONS (5)
  - ROAD TRAFFIC ACCIDENT [None]
  - INJURY [None]
  - DIABETES MELLITUS [None]
  - BLOOD GLUCOSE FLUCTUATION [None]
  - GENERALISED OEDEMA [None]
